FAERS Safety Report 10731992 (Version 2)
Quarter: 2015Q1

REPORT INFORMATION
  Report Type: Spontaneous
  Country: FR (occurrence: FR)
  Receive Date: 20150123
  Receipt Date: 20150210
  Transmission Date: 20150721
  Serious: Yes (Hospitalization)
  Sender: FDA-Public Use
  Company Number: FR-ROCHE-1523196

PATIENT
  Age: 33 Year
  Sex: Female

DRUGS (8)
  1. ROACTEMRA [Suspect]
     Active Substance: TOCILIZUMAB
     Route: 041
     Dates: start: 20140715, end: 20140717
  2. ENBREL [Concomitant]
     Active Substance: ETANERCEPT
     Route: 065
     Dates: start: 201304
  3. METOJECT [Concomitant]
     Active Substance: METHOTREXATE SODIUM
     Route: 065
     Dates: start: 201303
  4. ENBREL [Concomitant]
     Active Substance: ETANERCEPT
     Route: 065
     Dates: start: 201307
  5. ROACTEMRA [Suspect]
     Active Substance: TOCILIZUMAB
     Route: 041
     Dates: start: 20140616
  6. ROACTEMRA [Suspect]
     Active Substance: TOCILIZUMAB
     Indication: RHEUMATOID ARTHRITIS
     Route: 041
  7. ENBREL [Concomitant]
     Active Substance: ETANERCEPT
     Route: 065
     Dates: start: 20140717
  8. ROACTEMRA [Suspect]
     Active Substance: TOCILIZUMAB
     Route: 041
     Dates: start: 20140515

REACTIONS (3)
  - Rash [Recovered/Resolved]
  - Histiocytosis haematophagic [Recovered/Resolved]
  - Hepatitis E [Recovered/Resolved]

NARRATIVE: CASE EVENT DATE: 201407
